FAERS Safety Report 25038835 (Version 3)
Quarter: 2025Q3

REPORT INFORMATION
  Report Type: Report from Study
  Country: US (occurrence: US)
  Receive Date: 20250305
  Receipt Date: 20250918
  Transmission Date: 20251021
  Serious: Yes (Other)
  Sender: ABBVIE
  Company Number: US-ABBVIE-6161684

PATIENT
  Age: 68 Year
  Sex: Female
  Weight: 79.378 kg

DRUGS (9)
  1. IMBRUVICA [Suspect]
     Active Substance: IBRUTINIB
     Indication: Waldenstrom^s macroglobulinaemia
     Route: 048
     Dates: start: 20180628, end: 202502
  2. IMBRUVICA [Suspect]
     Active Substance: IBRUTINIB
     Indication: Waldenstrom^s macroglobulinaemia
     Dosage: RESTARTED IN FEB 2025
     Route: 048
  3. BUPROPION [Concomitant]
     Active Substance: BUPROPION
     Indication: Depression
  4. DULOXETINE [Concomitant]
     Active Substance: DULOXETINE
     Indication: Depression
  5. SYNTHROID [Concomitant]
     Active Substance: LEVOTHYROXINE SODIUM
     Indication: Thyroid disorder
  6. OMEPRAZOLE [Concomitant]
     Active Substance: OMEPRAZOLE
     Indication: Dyspepsia
  7. OLANZAPINE [Concomitant]
     Active Substance: OLANZAPINE
     Indication: Gastrointestinal disorder
  8. GEMTESA [Concomitant]
     Active Substance: VIBEGRON
     Indication: Bladder disorder
  9. XYZAL [Concomitant]
     Active Substance: LEVOCETIRIZINE DIHYDROCHLORIDE
     Indication: Hypersensitivity

REACTIONS (23)
  - Pain in extremity [Recovered/Resolved]
  - Accident [Unknown]
  - Erythema [Unknown]
  - Contusion [Not Recovered/Not Resolved]
  - Avulsion fracture [Not Recovered/Not Resolved]
  - Neuropathy peripheral [Not Recovered/Not Resolved]
  - Fall [Unknown]
  - Clavicle fracture [Not Recovered/Not Resolved]
  - Blood creatinine decreased [Not Recovered/Not Resolved]
  - Dizziness [Recovered/Resolved]
  - Emotional disorder [Unknown]
  - Pain [Unknown]
  - Depressed mood [Unknown]
  - Nausea [Recovered/Resolved]
  - General physical health deterioration [Unknown]
  - Impaired work ability [Unknown]
  - Vitamin C increased [Unknown]
  - Foot deformity [Recovered/Resolved]
  - Loss of personal independence in daily activities [Unknown]
  - Gastrointestinal disorder [Unknown]
  - Pain [Recovering/Resolving]
  - Ligament sprain [Not Recovered/Not Resolved]
  - Pain in extremity [Not Recovered/Not Resolved]

NARRATIVE: CASE EVENT DATE: 20200101
